FAERS Safety Report 17098269 (Version 1)
Quarter: 2019Q4

REPORT INFORMATION
  Report Type: Spontaneous
  Country: US (occurrence: US)
  Receive Date: 20191202
  Receipt Date: 20191202
  Transmission Date: 20200122
  Serious: Yes (Hospitalization)
  Sender: FDA-Public Use
  Company Number: US-PFIZER INC-2019510313

PATIENT
  Age: 74 Year
  Sex: Female
  Weight: 104.9 kg

DRUGS (1)
  1. SOMAVERT [Suspect]
     Active Substance: PEGVISOMANT
     Dosage: 30 MG, 1X/DAY (ONCE DAILY)
     Route: 058

REACTIONS (2)
  - Fatigue [Unknown]
  - Product dose omission [Unknown]
